FAERS Safety Report 5388800-5 (Version None)
Quarter: 2007Q3

REPORT INFORMATION
  Report Type: 
  Country: None (occurrence: None)
  Receive Date: 20070712
  Receipt Date: 20070627
  Transmission Date: 20080115
  Serious: Yes (Death)
  Sender: FDA-Public Use
  Company Number: 2007SP002481

PATIENT
  Age: 83 Year
  Sex: Male

DRUGS (2)
  1. BROVANA [Suspect]
     Indication: WHEEZING
     Dosage: INHALATION
     Route: 055
     Dates: start: 20070101, end: 20070101
  2. ALBUTEROL SULFATE W/ IPRATROPIUM BROMIDE [Concomitant]

REACTIONS (1)
  - UNRESPONSIVE TO STIMULI [None]
